FAERS Safety Report 11659318 (Version 2)
Quarter: 2015Q4

REPORT INFORMATION
  Report Type: Spontaneous
  Country: CN (occurrence: CN)
  Receive Date: 20151026
  Receipt Date: 20151030
  Transmission Date: 20160304
  Serious: Yes (Death, Hospitalization)
  Sender: FDA-Public Use
  Company Number: CN-ASTRAZENECA-2015SF01431

PATIENT
  Age: 43 Year
  Sex: Male
  Weight: 109 kg

DRUGS (2)
  1. MOXIFLOXACIN. [Concomitant]
     Active Substance: MOXIFLOXACIN
     Route: 042
  2. IRESSA [Suspect]
     Active Substance: GEFITINIB
     Route: 048
     Dates: start: 20151001

REACTIONS (4)
  - Drug ineffective [Unknown]
  - Lung adenocarcinoma [Fatal]
  - Acute respiratory distress syndrome [Fatal]
  - Interstitial lung disease [Unknown]
